FAERS Safety Report 23564049 (Version 1)
Quarter: 2024Q1

REPORT INFORMATION
  Report Type: Spontaneous
  Country: US (occurrence: US)
  Receive Date: 20240226
  Receipt Date: 20240226
  Transmission Date: 20240410
  Serious: No
  Sender: FDA-Public Use
  Company Number: US-BRISTOL-MYERS SQUIBB COMPANY-2024-029810

PATIENT
  Age: 64 Year
  Sex: Female

DRUGS (1)
  1. REVLIMID [Suspect]
     Active Substance: LENALIDOMIDE
     Indication: Cutaneous T-cell lymphoma
     Route: 048
     Dates: start: 202312

REACTIONS (3)
  - Lip pain [Unknown]
  - Oral herpes [Unknown]
  - Off label use [Unknown]
